FAERS Safety Report 25794360 (Version 1)
Quarter: 2025Q3

REPORT INFORMATION
  Report Type: Spontaneous
  Country: EU (occurrence: EU)
  Receive Date: 20250912
  Receipt Date: 20250912
  Transmission Date: 20251021
  Serious: Yes (Hospitalization, Other)
  Sender: NOVITIUM PHARMA
  Company Number: EU-NOVITIUMPHARMA-2025ITNVP02281

PATIENT
  Age: 14 Year
  Sex: Male

DRUGS (28)
  1. PREDNISONE [Suspect]
     Active Substance: PREDNISONE
     Indication: B precursor type acute leukaemia
  2. DEXAMETHASONE [Suspect]
     Active Substance: DEXAMETHASONE
     Indication: B precursor type acute leukaemia
  3. DEXAMETHASONE [Suspect]
     Active Substance: DEXAMETHASONE
  4. ELEXACAFTOR\IVACAFTOR\TEZACAFTOR [Concomitant]
     Active Substance: ELEXACAFTOR\IVACAFTOR\TEZACAFTOR
     Indication: Cystic fibrosis
  5. IVACAFTOR [Concomitant]
     Active Substance: IVACAFTOR
     Indication: Cystic fibrosis
  6. VINCRISTINE [Concomitant]
     Active Substance: VINCRISTINE
  7. DAUNORUBICIN [Concomitant]
     Active Substance: DAUNORUBICIN
  8. DAUNORUBICIN [Concomitant]
     Active Substance: DAUNORUBICIN
  9. PEGASPARGASE [Concomitant]
     Active Substance: PEGASPARGASE
  10. PEGASPARGASE [Concomitant]
     Active Substance: PEGASPARGASE
  11. PEGASPARGASE [Concomitant]
     Active Substance: PEGASPARGASE
  12. METHOTREXATE [Concomitant]
     Active Substance: METHOTREXATE
  13. METHOTREXATE [Concomitant]
     Active Substance: METHOTREXATE
  14. METHOTREXATE [Concomitant]
     Active Substance: METHOTREXATE
  15. METHOTREXATE [Concomitant]
     Active Substance: METHOTREXATE
  16. METHOTREXATE [Concomitant]
     Active Substance: METHOTREXATE
  17. METHOTREXATE [Concomitant]
     Active Substance: METHOTREXATE
  18. CYCLOPHOSPHAMIDE [Concomitant]
     Active Substance: CYCLOPHOSPHAMIDE
  19. CYCLOPHOSPHAMIDE [Concomitant]
     Active Substance: CYCLOPHOSPHAMIDE
  20. CYCLOPHOSPHAMIDE [Concomitant]
     Active Substance: CYCLOPHOSPHAMIDE
  21. CYTARABINE [Concomitant]
     Active Substance: CYTARABINE
  22. CYTARABINE [Concomitant]
     Active Substance: CYTARABINE
  23. MERCAPTOPURINE [Concomitant]
     Active Substance: MERCAPTOPURINE
  24. MERCAPTOPURINE [Concomitant]
     Active Substance: MERCAPTOPURINE
  25. MERCAPTOPURINE [Concomitant]
     Active Substance: MERCAPTOPURINE
  26. BLINATUMOMAB [Concomitant]
     Active Substance: BLINATUMOMAB
  27. DOXORUBICIN [Concomitant]
     Active Substance: DOXORUBICIN
  28. THIOGUANINE ANHYDROUS [Concomitant]
     Active Substance: THIOGUANINE ANHYDROUS

REACTIONS (6)
  - Neutropenia [Unknown]
  - Pneumonia fungal [Unknown]
  - Device related thrombosis [Unknown]
  - Pneumonia viral [Unknown]
  - Mucosal inflammation [Unknown]
  - Diabetes mellitus [Unknown]
